FAERS Safety Report 7527282-1 (Version None)
Quarter: 2011Q2

REPORT INFORMATION
  Report Type: 
  Country: None (occurrence: None)
  Receive Date: 20110603
  Receipt Date: 20110603
  Transmission Date: 20111010
  Serious: Yes (Other)
  Sender: FDA-Public Use
  Company Number: None

PATIENT
  Age: 55 Year
  Sex: Female
  Weight: 90.7194 kg

DRUGS (1)
  1. LOVASTATIN [Suspect]
     Indication: BLOOD CHOLESTEROL
     Dosage: 1 BED TIME
     Dates: start: 20100208

REACTIONS (5)
  - DRUG INEFFECTIVE [None]
  - PAIN IN EXTREMITY [None]
  - VENOUS INSUFFICIENCY [None]
  - MUSCULOSKELETAL PAIN [None]
  - PALPITATIONS [None]
